FAERS Safety Report 23929536 (Version 1)
Quarter: 2024Q2

REPORT INFORMATION
  Report Type: Spontaneous
  Country: JP (occurrence: JP)
  Receive Date: 20240601
  Receipt Date: 20240601
  Transmission Date: 20240715
  Serious: Yes (Other)
  Sender: FDA-Public Use
  Company Number: JP-UCBJ-CD202404725UCBPHAPROD

PATIENT
  Age: 9 Year
  Sex: Male

DRUGS (3)
  1. LEVETIRACETAM [Suspect]
     Active Substance: LEVETIRACETAM
     Indication: Product used for unknown indication
     Route: 048
  2. CEFEPIME HYDROCHLORIDE [Concomitant]
     Active Substance: CEFEPIME HYDROCHLORIDE
     Indication: Febrile neutropenia
     Dosage: UNK
  3. TISAGENLECLEUCEL [Concomitant]
     Active Substance: TISAGENLECLEUCEL
     Indication: Product used for unknown indication
     Dosage: UNK

REACTIONS (2)
  - Cytokine release syndrome [Recovered/Resolved]
  - B-cell type acute leukaemia [Unknown]
